FAERS Safety Report 10248532 (Version 2)
Quarter: 2014Q2

REPORT INFORMATION
  Report Type: Report from Study
  Country: GB (occurrence: GB)
  Receive Date: 20140620
  Receipt Date: 20140624
  Transmission Date: 20141212
  Serious: Yes (Hospitalization)
  Sender: FDA-Public Use
  Company Number: GB-ROCHE-1419331

PATIENT
  Age: 67 Year
  Sex: Female
  Weight: 105.7 kg

DRUGS (7)
  1. TRASTUZUMAB EMTANSINE [Suspect]
     Indication: HER-2 POSITIVE BREAST CANCER
     Route: 042
     Dates: start: 20131101
  2. LEVOTHYROXINE [Concomitant]
     Route: 065
     Dates: start: 1993
  3. LANTUS SOLOSTAR [Concomitant]
     Route: 065
     Dates: start: 201111
  4. NOVORAPID [Concomitant]
     Route: 065
     Dates: start: 201111
  5. PARACETAMOL [Concomitant]
     Route: 065
     Dates: start: 201306
  6. IBUPROFEN [Concomitant]
     Route: 065
     Dates: start: 201306
  7. RAMIPRIL [Concomitant]
     Route: 065
     Dates: start: 20140328

REACTIONS (1)
  - Lower respiratory tract infection [Recovered/Resolved]
